FAERS Safety Report 5319487-5 (Version None)
Quarter: 2007Q2

REPORT INFORMATION
  Report Type: 
  Country: None (occurrence: None)
  Receive Date: 20070508
  Receipt Date: 20070427
  Transmission Date: 20071010
  Serious: No
  Sender: FDA-Public Use
  Company Number: GB-PFIZER INC-2007031912

PATIENT

DRUGS (1)
  1. ISTIN [Suspect]
     Route: 048

REACTIONS (1)
  - NO ADVERSE EFFECT [None]
